FAERS Safety Report 6107940-6 (Version None)
Quarter: 2009Q1

REPORT INFORMATION
  Report Type: 
  Country: None (occurrence: None)
  Receive Date: 20090309
  Receipt Date: 20090206
  Transmission Date: 20090719
  Serious: No
  Sender: FDA-Public Use
  Company Number: US-BAYER-200813925BCC

PATIENT
  Age: 79 Year
  Sex: Female
  Weight: 78 kg

DRUGS (9)
  1. ALEVE [Suspect]
     Indication: ARTHRITIS
     Dates: start: 19860101
  2. ALEVE [Suspect]
     Dosage: UNIT DOSE: 220 MG
     Dates: start: 20070101
  3. LEVOTHYROXINE SODIUM [Concomitant]
     Dates: start: 19730101
  4. PRAVASTATIN SODIUM [Concomitant]
  5. PROPRANOLOL HCL W/HYDROCHLOROTHIAZIDE [Concomitant]
  6. NIZATIDINE [Concomitant]
  7. GLUCOSAMINE [Concomitant]
  8. CHONDROITIN [Concomitant]
  9. MULTI-VITAMIN [Concomitant]

REACTIONS (1)
  - NEPHROLITHIASIS [None]
